FAERS Safety Report 12115427 (Version 1)
Quarter: 2016Q1

REPORT INFORMATION
  Report Type: Spontaneous
  Country: DK (occurrence: DK)
  Receive Date: 20160225
  Receipt Date: 20160225
  Transmission Date: 20160526
  Serious: Yes (Disabling, Congenital Anomaly)
  Sender: FDA-Public Use
  Company Number: DK-EAGLE PHARMACEUTICALS, INC.-ELL201505-000114

PATIENT
  Age: 3 Year
  Sex: Female

DRUGS (1)
  1. DICLOFENAC SODIUM AND MISOPROSTOL [Suspect]
     Active Substance: DICLOFENAC SODIUM\MISOPROSTOL
     Route: 064

REACTIONS (2)
  - Cerebral palsy [Unknown]
  - Foetal exposure during delivery [Unknown]
